FAERS Safety Report 16730365 (Version 1)
Quarter: 2019Q4

REPORT INFORMATION
  Report Type: Spontaneous
  Country: US (occurrence: US)
  Receive Date: 20190821
  Receipt Date: 20190821
  Transmission Date: 20200122
  Serious: Yes (Other)
  Sender: FDA-Public Use
  Company Number: None

PATIENT
  Age: 70 Year
  Sex: Female

DRUGS (2)
  1. LENVIMA [Suspect]
     Active Substance: LENVATINIB
     Indication: THERAPY CHANGE
     Route: 048
     Dates: start: 20190618, end: 20190816
  2. ONDANSETRON [Concomitant]
     Active Substance: ONDANSETRON
     Dates: start: 20190601, end: 20190821

REACTIONS (5)
  - Jaw disorder [None]
  - Vomiting [None]
  - Tongue discomfort [None]
  - Fatigue [None]
  - Dry mouth [None]

NARRATIVE: CASE EVENT DATE: 20190801
